FAERS Safety Report 18423934 (Version 1)
Quarter: 2020Q4

REPORT INFORMATION
  Report Type: Spontaneous
  Country: US (occurrence: US)
  Receive Date: 20201025
  Receipt Date: 20201025
  Transmission Date: 20210114
  Serious: Yes (Other)
  Sender: FDA-Public Use
  Company Number: NVSC2020US284841

PATIENT
  Age: 60 Year
  Sex: Male

DRUGS (2)
  1. HYDROXYCHLOROQUINE [Suspect]
     Active Substance: HYDROXYCHLOROQUINE
     Indication: COVID-19
     Dosage: 800 MG, ON DAY 2
     Route: 065
  2. HYDROXYCHLOROQUINE [Suspect]
     Active Substance: HYDROXYCHLOROQUINE
     Dosage: 400 MG, ON DAY 3
     Route: 065

REACTIONS (3)
  - Product use in unapproved indication [Unknown]
  - Haemolytic anaemia [Not Recovered/Not Resolved]
  - Methaemoglobinaemia [Not Recovered/Not Resolved]
